FAERS Safety Report 6051610-X (Version None)
Quarter: 2009Q1

REPORT INFORMATION
  Report Type: 
  Country: None (occurrence: None)
  Receive Date: 20090126
  Receipt Date: 20090120
  Transmission Date: 20090719
  Serious: Yes (Hospitalization)
  Sender: FDA-Public Use
  Company Number: AU-MERCK-0901AUS00145

PATIENT
  Age: 61 Year
  Sex: Male
  Weight: 85 kg

DRUGS (9)
  1. JANUVIA [Suspect]
     Route: 048
     Dates: start: 20081001, end: 20081101
  2. ASPIRIN [Concomitant]
     Route: 065
  3. GLICLAZIDE [Concomitant]
     Route: 065
  4. LERCANIDIPINE HYDROCHLORIDE [Concomitant]
     Route: 065
  5. METFORMIN HYDROCHLORIDE [Concomitant]
     Route: 065
  6. RABEPRAZOLE SODIUM [Concomitant]
     Route: 065
  7. ROSUVASTATIN CALCIUM [Concomitant]
     Route: 065
  8. TELMISARTAN [Concomitant]
     Route: 065
  9. VENLAFAXINE HYDROCHLORIDE [Concomitant]
     Route: 065

REACTIONS (1)
  - GUILLAIN-BARRE SYNDROME [None]
